FAERS Safety Report 12424969 (Version 1)
Quarter: 2016Q2

REPORT INFORMATION
  Report Type: Spontaneous
  Country: US (occurrence: US)
  Receive Date: 20160601
  Receipt Date: 20160601
  Transmission Date: 20160815
  Serious: No
  Sender: FDA-Public Use
  Company Number: US-VANDA PHARMACEUTICALS, INC-2015ILOUS001514

PATIENT
  Age: 25 Year
  Sex: Male
  Weight: 78.46 kg

DRUGS (10)
  1. FANAPT [Suspect]
     Active Substance: ILOPERIDONE
     Indication: CRANIOCEREBRAL INJURY
     Dosage: 6 MG, BID
     Route: 048
     Dates: end: 20150717
  2. FANAPT [Suspect]
     Active Substance: ILOPERIDONE
     Dosage: 3 MG, DAILY
     Dates: start: 20151019, end: 20151020
  3. WELLBUTRIN [Concomitant]
     Active Substance: BUPROPION HYDROCHLORIDE
     Indication: PRODUCT USED FOR UNKNOWN INDICATION
     Dosage: 200 MG, UNK
  4. PRAZOSIN [Concomitant]
     Active Substance: PRAZOSIN
     Indication: PRODUCT USED FOR UNKNOWN INDICATION
     Dosage: 1 MG, QHS
  5. LEXAPRO [Concomitant]
     Active Substance: ESCITALOPRAM OXALATE
     Indication: PRODUCT USED FOR UNKNOWN INDICATION
     Dosage: 10 MG, UNK
  6. GABAPENTIN. [Suspect]
     Active Substance: GABAPENTIN
     Indication: PRODUCT USED FOR UNKNOWN INDICATION
     Dosage: 300 MG, TID
     Dates: end: 2015
  7. SEROQUEL [Concomitant]
     Active Substance: QUETIAPINE FUMARATE
     Indication: PRODUCT USED FOR UNKNOWN INDICATION
     Dosage: UNK
     Dates: end: 2015
  8. FANAPT [Suspect]
     Active Substance: ILOPERIDONE
     Indication: BIPOLAR DISORDER
     Dosage: 6 MG, UNK
     Route: 048
     Dates: start: 201409
  9. FANAPT [Suspect]
     Active Substance: ILOPERIDONE
     Dosage: 4 MG QAM AND 6 MG QPM
     Route: 048
     Dates: start: 20150718, end: 20150722
  10. FANAPT [Suspect]
     Active Substance: ILOPERIDONE
     Dosage: 6 MG, QHS
     Route: 048
     Dates: start: 20150723

REACTIONS (9)
  - Anger [Not Recovered/Not Resolved]
  - Paranoia [Recovering/Resolving]
  - Poor quality sleep [Recovering/Resolving]
  - Increased appetite [Recovering/Resolving]
  - Fatigue [Not Recovered/Not Resolved]
  - Drug effect decreased [Unknown]
  - Weight increased [Unknown]
  - Restlessness [Recovered/Resolved]
  - Product use issue [Unknown]

NARRATIVE: CASE EVENT DATE: 201507
